FAERS Safety Report 13655622 (Version 3)
Quarter: 2017Q3

REPORT INFORMATION
  Report Type: Spontaneous
  Country: CA (occurrence: CA)
  Receive Date: 20170615
  Receipt Date: 20170821
  Transmission Date: 20171127
  Serious: Yes (Other)
  Sender: FDA-Public Use
  Company Number: CA-CELLTRION INC.-2017CA007731

PATIENT

DRUGS (1)
  1. INFLECTRA [Suspect]
     Active Substance: INFLIXIMAB-DYYB
     Indication: CROHN^S DISEASE
     Dosage: 400 MG,  Q 0, 2, 6 WEEKS, THEN EVERY 8 WEEKS
     Route: 042
     Dates: start: 20170303, end: 20170609

REACTIONS (6)
  - Antibody test abnormal [Unknown]
  - Urticaria [Recovered/Resolved]
  - Immune-mediated adverse reaction [Recovered/Resolved]
  - Heart rate decreased [Recovered/Resolved]
  - Pruritus generalised [Recovered/Resolved]
  - Drug level below therapeutic [Recovering/Resolving]

NARRATIVE: CASE EVENT DATE: 20170609
